FAERS Safety Report 5400234-3 (Version None)
Quarter: 2007Q3

REPORT INFORMATION
  Report Type: 
  Country: None (occurrence: None)
  Receive Date: 20070727
  Receipt Date: 20070727
  Transmission Date: 20080115
  Serious: Yes (Other)
  Sender: FDA-Public Use
  Company Number: None

PATIENT
  Age: 76 Year
  Sex: Female
  Weight: 49.8957 kg

DRUGS (10)
  1. ZYVOX [Suspect]
     Indication: PNEUMONIA STAPHYLOCOCCAL
     Dosage: 600MG 12  HOURS OTHER
     Dates: start: 20070713, end: 20070724
  2. CRANBERRY JUICE [Concomitant]
  3. KEPPRA [Concomitant]
  4. LAMICTAL [Concomitant]
  5. LEVOTHYROXINE SODIUM [Concomitant]
  6. REGLAN [Concomitant]
  7. METOPROLOL SUCCINATE [Concomitant]
  8. SENNA [Concomitant]
  9. FUROSEMIDE [Concomitant]
  10. LEVAQUIN [Concomitant]

REACTIONS (2)
  - BLISTER [None]
  - RASH PAPULAR [None]
